FAERS Safety Report 7273493-2 (Version None)
Quarter: 2011Q1

REPORT INFORMATION
  Report Type: 
  Country: None (occurrence: None)
  Receive Date: 20110126
  Receipt Date: 20110119
  Transmission Date: 20110831
  Serious: Yes (Hospitalization)
  Sender: FDA-Public Use
  Company Number: 2011MA000479

PATIENT
  Age: 64 Year
  Sex: Male

DRUGS (4)
  1. PREV MEDS [Concomitant]
  2. CO-CODAMOL [Concomitant]
  3. SERTRALINE HYDROCHLORIDE [Suspect]
     Dosage: 500 MG;QD;PO
     Route: 048
     Dates: start: 20101012
  4. OMEPRAZOLE [Concomitant]

REACTIONS (3)
  - CHOLECYSTITIS [None]
  - HELICOBACTER INFECTION [None]
  - PEPTIC ULCER HAEMORRHAGE [None]
